FAERS Safety Report 25537043 (Version 4)
Quarter: 2025Q3

REPORT INFORMATION
  Report Type: Spontaneous
  Country: EU (occurrence: EU)
  Receive Date: 20250710
  Receipt Date: 20250822
  Transmission Date: 20251021
  Serious: Yes (Death, Other)
  Sender: TEVA
  Company Number: EU-SA-2025SA157853

PATIENT
  Age: 16 Year
  Sex: Female
  Weight: 46 kg

DRUGS (42)
  1. CARBOPLATIN [Suspect]
     Active Substance: CARBOPLATIN
     Indication: B-cell lymphoma
     Route: 042
     Dates: start: 20250502
  2. OBINUTUZUMAB [Suspect]
     Active Substance: OBINUTUZUMAB
     Indication: B-cell lymphoma
     Route: 042
     Dates: start: 20250420
  3. HYDROCORTISONE [Suspect]
     Active Substance: HYDROCORTISONE
     Indication: B-cell lymphoma
     Route: 037
     Dates: start: 20250428
  4. GLOFITAMAB [Suspect]
     Active Substance: GLOFITAMAB
     Indication: B-cell lymphoma
     Route: 042
     Dates: start: 20250507
  5. METHOTREXATE [Suspect]
     Active Substance: METHOTREXATE
     Indication: B-cell lymphoma
     Route: 037
     Dates: start: 20250428
  6. LENOGRASTIM [Suspect]
     Active Substance: LENOGRASTIM
     Indication: B-cell lymphoma
     Route: 042
     Dates: start: 20250507
  7. LENOGRASTIM [Suspect]
     Active Substance: LENOGRASTIM
     Indication: B-cell lymphoma
     Route: 058
     Dates: start: 20250505
  8. VALACYCLOVIR HYDROCHLORIDE [Concomitant]
     Active Substance: VALACYCLOVIR HYDROCHLORIDE
     Indication: Prophylaxis
     Dosage: 500 MILLIGRAM, BID
     Route: 048
     Dates: start: 20250326, end: 20250430
  9. CYTARABINE [Suspect]
     Active Substance: CYTARABINE
     Indication: B-cell lymphoma
     Route: 037
     Dates: start: 20250428
  10. ETOPOSIDE [Suspect]
     Active Substance: ETOPOSIDE
     Indication: B-cell lymphoma
     Route: 042
     Dates: start: 20250502
  11. VASOPRESSIN [Concomitant]
     Active Substance: VASOPRESSIN
     Indication: Product used for unknown indication
     Route: 065
  12. IFOSFAMIDE [Suspect]
     Active Substance: IFOSFAMIDE
     Indication: B-cell lymphoma
     Route: 042
     Dates: start: 20250502
  13. MESNA [Suspect]
     Active Substance: MESNA
     Indication: B-cell lymphoma
     Route: 042
     Dates: start: 20250502
  14. PIPERACILLIN SODIUM\TAZOBACTAM SODIUM [Concomitant]
     Active Substance: PIPERACILLIN SODIUM\TAZOBACTAM SODIUM
     Indication: Prophylaxis
     Dosage: 4 GRAM, BID
     Route: 042
     Dates: start: 20250508, end: 20250508
  15. ONDANSETRON [Concomitant]
     Active Substance: ONDANSETRON
     Indication: Nausea
     Dosage: 7 MILLIGRAM, BID
     Route: 042
     Dates: start: 20250505, end: 20250506
  16. ONDANSETRON [Concomitant]
     Active Substance: ONDANSETRON
     Indication: Nausea
     Dosage: 8 MILLIGRAM, QD
     Route: 042
     Dates: start: 20250430, end: 20250430
  17. ONDANSETRON [Concomitant]
     Active Substance: ONDANSETRON
     Indication: Nausea
     Dosage: 7 MILLIGRAM, QD
     Route: 042
     Dates: start: 20250428, end: 20250428
  18. ONDANSETRON [Concomitant]
     Active Substance: ONDANSETRON
     Indication: Nausea
     Dosage: 8 MILLIGRAM, BID
     Route: 042
     Dates: start: 20250501, end: 20250504
  19. ONDANSETRON [Concomitant]
     Active Substance: ONDANSETRON
     Indication: Nausea
     Dosage: 7 MILLIGRAM, QD
     Route: 042
     Dates: start: 20250504, end: 20250504
  20. REDUCTO [Concomitant]
     Indication: Hypokalaemia
     Dosage: 2 DOSAGE FORM, QD
     Route: 048
     Dates: start: 20250506, end: 20250506
  21. METAMIZOLE [Concomitant]
     Active Substance: METAMIZOLE
     Indication: Pyrexia
     Dosage: 700 MILLIGRAM, QD
     Route: 042
     Dates: start: 20250430, end: 20250430
  22. METAMIZOLE [Concomitant]
     Active Substance: METAMIZOLE
     Indication: Pyrexia
     Dosage: 700 MILLIGRAM, QD
     Route: 042
     Dates: start: 20250426, end: 20250426
  23. METAMIZOLE [Concomitant]
     Active Substance: METAMIZOLE
     Indication: Pyrexia
     Dosage: 700 MILLIGRAM, QID
     Route: 042
     Dates: start: 20250429, end: 20250429
  24. METAMIZOLE [Concomitant]
     Active Substance: METAMIZOLE
     Indication: Pyrexia
     Route: 042
     Dates: start: 20250508, end: 20250512
  25. METAMIZOLE [Concomitant]
     Active Substance: METAMIZOLE
     Indication: Pyrexia
     Dosage: 700 MILLIGRAM, BID
     Route: 042
     Dates: start: 20250428, end: 20250428
  26. METAMIZOLE [Concomitant]
     Active Substance: METAMIZOLE
     Indication: Pyrexia
     Route: 042
     Dates: start: 20250503, end: 20250503
  27. METAMIZOLE [Concomitant]
     Active Substance: METAMIZOLE
     Indication: Pyrexia
     Dosage: UNK, QD
     Route: 042
     Dates: start: 20250503, end: 20250512
  28. METAMIZOLE [Concomitant]
     Active Substance: METAMIZOLE
     Indication: Pyrexia
     Dosage: 500 MILLIGRAM, QD
     Route: 048
     Dates: start: 20250430, end: 20250430
  29. LEVOMEPROMAZINE [Concomitant]
     Active Substance: LEVOMEPROMAZINE
     Indication: Nausea
     Dosage: 20 MILLIGRAM, QD
     Route: 048
     Dates: start: 20250506, end: 20250506
  30. KALINOR [Concomitant]
     Indication: Hypokalaemia
     Dosage: 3 DOSAGE FORM, QD
     Route: 048
     Dates: start: 20250502, end: 20250502
  31. POLYETHYLENE GLYCOLS [Concomitant]
     Active Substance: POLYETHYLENE GLYCOLS
     Indication: Prophylaxis
     Dosage: UNK, QD
     Route: 048
     Dates: start: 20250506, end: 20250506
  32. DIMENHYDRINATE [Concomitant]
     Active Substance: DIMENHYDRINATE
     Indication: Nausea
     Route: 042
     Dates: start: 20250503, end: 20250505
  33. ACETAMINOPHEN [Concomitant]
     Active Substance: ACETAMINOPHEN
     Indication: Pyrexia
     Dosage: 500 MILLIGRAM, QD
     Route: 042
     Dates: start: 20250501, end: 20250501
  34. ACETAMINOPHEN [Concomitant]
     Active Substance: ACETAMINOPHEN
     Indication: Pyrexia
     Route: 042
     Dates: start: 20250430, end: 20250508
  35. VANCOMYCIN [Concomitant]
     Active Substance: VANCOMYCIN
     Indication: Prophylaxis
     Dosage: 650 MILLIGRAM, BID
     Route: 042
     Dates: start: 20250508, end: 20250508
  36. VANCOMYCIN [Concomitant]
     Active Substance: VANCOMYCIN
     Indication: Prophylaxis
     Dosage: 650 MILLIGRAM, TID
     Route: 042
     Dates: start: 20250509, end: 20250511
  37. LYPRESSIN [Concomitant]
     Active Substance: LYPRESSIN
     Indication: Hypotension
     Route: 065
  38. MORPHINE SULFATE [Concomitant]
     Active Substance: MORPHINE SULFATE
     Indication: Pain
     Route: 042
     Dates: start: 20250507, end: 20250511
  39. CLEMASTINE [Concomitant]
     Active Substance: CLEMASTINE
     Indication: Prophylaxis
     Route: 042
     Dates: start: 20250430, end: 20250514
  40. METHYLPREDNISOLONE [Concomitant]
     Active Substance: METHYLPREDNISOLONE
     Indication: Prophylaxis
     Route: 042
     Dates: start: 20250430, end: 20250507
  41. AMPHOTERICIN B [Concomitant]
     Active Substance: AMPHOTERICIN B
     Indication: Prophylaxis
     Route: 048
     Dates: start: 20250422, end: 20250513
  42. PANTOPRAZOLE [Concomitant]
     Active Substance: PANTOPRAZOLE
     Indication: Prophylaxis
     Dosage: 20 MILLIGRAM, QD
     Route: 048
     Dates: start: 20250430, end: 20250506

REACTIONS (2)
  - Death [Fatal]
  - Cytokine release syndrome [Recovered/Resolved]

NARRATIVE: CASE EVENT DATE: 20250507
